FAERS Safety Report 8126940-8 (Version None)
Quarter: 2012Q1

REPORT INFORMATION
  Report Type: 
  Country: None (occurrence: None)
  Receive Date: 20120210
  Receipt Date: 20120207
  Transmission Date: 20120608
  Serious: No
  Sender: FDA-Public Use
  Company Number: US-PFIZER INC-2012034216

PATIENT
  Sex: Male
  Weight: 58.957 kg

DRUGS (3)
  1. IRON [Concomitant]
     Dosage: 142 MG, UNK
  2. VITAMIN D [Concomitant]
     Dosage: 1000 IU, UNK
  3. SUTENT [Suspect]
     Dosage: 12.5 MG, 4 CAPSULES FOR 28 DAYS, THEN 2 WEEK BREAK AS DIRECTED
     Route: 048

REACTIONS (1)
  - INSOMNIA [None]
